FAERS Safety Report 9126969 (Version 1)
Quarter: 2013Q1

REPORT INFORMATION
  Report Type: Spontaneous
  Country: US (occurrence: None)
  Receive Date: 20130228
  Receipt Date: 20130228
  Transmission Date: 20140127
  Serious: Yes (Hospitalization)
  Sender: FDA-Public Use
  Company Number: None

PATIENT
  Age: 40 Year
  Sex: Female

DRUGS (1)
  1. METHYLPREDNISOLONE [Suspect]
     Indication: PAIN MANAGEMENT
     Dosage: 1 ML  1  EPIDURAL
     Route: 008
     Dates: start: 20120910, end: 20120910

REACTIONS (1)
  - Meningitis [None]
